FAERS Safety Report 4973042-5 (Version None)
Quarter: 2006Q2

REPORT INFORMATION
  Report Type: 
  Country: None (occurrence: None)
  Receive Date: 20060414
  Receipt Date: 20050912
  Transmission Date: 20061013
  Serious: Yes (Disabling, Other)
  Sender: FDA-Public Use
  Company Number: 2005AC01439

PATIENT
  Age: 67 Year
  Sex: Female

DRUGS (7)
  1. ROPIVACAINE [Suspect]
     Indication: EPIDURAL ANAESTHESIA
     Dosage: 1ML OF 1% SOLUTION
     Route: 008
  2. TRIAMCINOLONE ACETONIDE [Suspect]
     Indication: MUSCULOSKELETAL CHEST PAIN
     Route: 008
  3. ISOVUE-128 [Concomitant]
     Indication: X-RAY
     Route: 008
  4. ISOVUE-128 [Concomitant]
     Route: 008
  5. ISOVUE-128 [Concomitant]
     Route: 008
  6. MIDAZOLAM [Concomitant]
     Indication: SEDATION
  7. FENTANYL [Concomitant]
     Indication: SEDATION

REACTIONS (4)
  - BLOOD PRESSURE INCREASED [None]
  - HEART RATE INCREASED [None]
  - PARAPLEGIA [None]
  - SPINAL CORD INFARCTION [None]
